FAERS Safety Report 7559583-5 (Version None)
Quarter: 2011Q2

REPORT INFORMATION
  Report Type: 
  Country: None (occurrence: None)
  Receive Date: 20110609
  Receipt Date: 20110602
  Transmission Date: 20111010
  Serious: Yes (Hospitalization, Other)
  Sender: FDA-Public Use
  Company Number: THYM-1001051

PATIENT
  Age: 62 Year
  Sex: Male
  Weight: 57 kg

DRUGS (9)
  1. THYMOGLOBULIN [Suspect]
     Indication: APLASTIC ANAEMIA
     Dosage: 202.5 MG, ONCE, INTRAVENOUS
     Route: 042
     Dates: start: 20090507, end: 20090507
  2. CYCLOSPORINE [Concomitant]
  3. METHYLPREDNISOLONE [Concomitant]
  4. PREDNISOLONE ACETATE [Concomitant]
  5. FLUCONAZOLE [Concomitant]
  6. BACTRIM [Concomitant]
  7. RED BLOOD CELLS (RED BLOOD CELLS) [Concomitant]
  8. PLATELETS (PLATELETS) [Concomitant]
  9. LEVOFLOXACIN [Concomitant]

REACTIONS (5)
  - LIVER DISORDER [None]
  - LEUKOPENIA [None]
  - ASPARTATE AMINOTRANSFERASE INCREASED [None]
  - PYREXIA [None]
  - ALANINE AMINOTRANSFERASE INCREASED [None]
